FAERS Safety Report 6833553-4 (Version None)
Quarter: 2010Q3

REPORT INFORMATION
  Report Type: 
  Country: None (occurrence: None)
  Receive Date: 20100712
  Receipt Date: 20070327
  Transmission Date: 20110219
  Serious: No
  Sender: FDA-Public Use
  Company Number: US-PFIZER INC-2007026015

PATIENT
  Sex: Female
  Weight: 110.22 kg

DRUGS (4)
  1. CHANTIX [Suspect]
     Indication: SMOKING CESSATION THERAPY
     Dates: start: 20070101
  2. TAMOXIFEN [Suspect]
     Indication: BREAST CANCER
     Dates: start: 20061101
  3. ALL OTHER THERAPEUTIC PRODUCTS [Suspect]
     Indication: HYPOAESTHESIA
     Dates: start: 20070214
  4. TRASTUZUMAB [Concomitant]

REACTIONS (4)
  - HEADACHE [None]
  - HYPOAESTHESIA [None]
  - NAUSEA [None]
  - WEIGHT DECREASED [None]
